FAERS Safety Report 8974449 (Version 6)
Quarter: 2014Q3

REPORT INFORMATION
  Report Type: Spontaneous
  Country: US (occurrence: US)
  Receive Date: 20121219
  Receipt Date: 20140822
  Transmission Date: 20150326
  Serious: Yes (Hospitalization, Other)
  Sender: FDA-Public Use
  Company Number: US-MERCK-1212USA006892

PATIENT
  Sex: Female
  Weight: 50.79 kg

DRUGS (4)
  1. ALENDRONATE SODIUM. [Suspect]
     Active Substance: ALENDRONATE SODIUM
     Indication: OSTEOPOROSIS
     Dosage: 70 MG, QW
     Route: 048
     Dates: start: 20090831, end: 20110407
  2. FOSAMAX [Suspect]
     Active Substance: ALENDRONATE SODIUM
     Indication: OSTEOPOROSIS
     Route: 048
  3. ACTONEL [Suspect]
     Active Substance: RISEDRONATE SODIUM
     Indication: OSTEOPOROSIS
     Dosage: 35 MG, UNK
     Route: 048
     Dates: start: 20061128, end: 20090831
  4. FOSAMAX [Suspect]
     Active Substance: ALENDRONATE SODIUM
     Indication: OSTEOPOROSIS
     Dosage: 70 MG, QW
     Route: 048
     Dates: start: 20021007, end: 20061128

REACTIONS (28)
  - Osteopenia [Unknown]
  - Femur fracture [Recovered/Resolved]
  - Femur fracture [Unknown]
  - Contusion [Unknown]
  - Haemorrhagic anaemia [Unknown]
  - Low turnover osteopathy [Unknown]
  - Blood cholesterol increased [Unknown]
  - Ventricular hypertrophy [Unknown]
  - Intramedullary rod insertion [Unknown]
  - Scoliosis [Unknown]
  - Hypertension [Unknown]
  - Joint effusion [Unknown]
  - Cataract operation [Unknown]
  - Angina pectoris [Unknown]
  - Treatment noncompliance [Unknown]
  - Osteoma [Unknown]
  - Ankle fracture [Unknown]
  - Radius fracture [Unknown]
  - Tibia fracture [Unknown]
  - Ankle operation [Unknown]
  - Vascular calcification [Unknown]
  - Wrist fracture [Unknown]
  - Open reduction of fracture [Unknown]
  - Osteoarthritis [Unknown]
  - Hand fracture [Unknown]
  - Retinal haemorrhage [Unknown]
  - Vocal cord polyp [Unknown]
  - Ankle fracture [Recovering/Resolving]

NARRATIVE: CASE EVENT DATE: 2002
